FAERS Safety Report 8461112 (Version 4)
Quarter: 2012Q4

REPORT INFORMATION
  Report Type: 
  Country: US (occurrence: US)
  Receive Date: 20120315
  Receipt Date: 20121121
  Transmission Date: 20130627
  Serious: Yes (Life-Threatening, Hospitalization, Disabling, Other)
  Sender: FDA-Public Use
  Company Number: US-ACTELION-A-NJ2012-60546

PATIENT
  Age: 55 Year
  Sex: Male

DRUGS (11)
  1. VELETRI [Suspect]
     Indication: PORTOPULMONARY HYPERTENSION
     Dosage: 14 ng/kg, per min
     Route: 041
     Dates: start: 20100727
  2. ASPIRIN [Concomitant]
  3. SOMA [Concomitant]
  4. PROTONIX [Concomitant]
  5. LACTULOSE [Concomitant]
  6. PERCOLONE [Concomitant]
  7. KCL [Concomitant]
  8. FENTANYL [Concomitant]
  9. MECLIZINE [Concomitant]
  10. ZOTRAN [Concomitant]
  11. NORVASC [Concomitant]

REACTIONS (20)
  - Catheter site haemorrhage [Unknown]
  - Device related sepsis [Recovering/Resolving]
  - Abdominal pain [Unknown]
  - Inguinal hernia repair [Recovering/Resolving]
  - Renal failure chronic [Recovering/Resolving]
  - Dialysis [Unknown]
  - Cryoglobulinaemia [Recovering/Resolving]
  - Pubis fracture [Recovering/Resolving]
  - Fall [Recovering/Resolving]
  - Anaemia [Recovering/Resolving]
  - Transfusion [Unknown]
  - Hypoxia [Recovered/Resolved]
  - Mechanical ventilation [Unknown]
  - Pain in extremity [Recovering/Resolving]
  - Arthralgia [Recovering/Resolving]
  - Pulmonary arterial hypertension [Not Recovered/Not Resolved]
  - Condition aggravated [Not Recovered/Not Resolved]
  - Nausea [Unknown]
  - Vomiting [Unknown]
  - Confusional state [Recovering/Resolving]
